FAERS Safety Report 13844276 (Version 1)
Quarter: 2017Q3

REPORT INFORMATION
  Report Type: Spontaneous
  Country: US (occurrence: US)
  Receive Date: 20170808
  Receipt Date: 20170808
  Transmission Date: 20171127
  Serious: No
  Sender: FDA-Public Use
  Company Number: US-PFIZER INC-2017340559

PATIENT
  Age: 80 Year
  Sex: Female
  Weight: 66.68 kg

DRUGS (15)
  1. MIRALAX [Concomitant]
     Active Substance: POLYETHYLENE GLYCOL 3350
     Indication: LAXATIVE SUPPORTIVE CARE
     Dosage: UNK, POWDER AS NEEDED
  2. ALEVE [Concomitant]
     Active Substance: NAPROXEN SODIUM
     Indication: PAIN
     Dosage: 220 MG, AS NEEDED
  3. HYDROCODONE [Concomitant]
     Active Substance: HYDROCODONE
     Indication: PAIN
     Dosage: 5-325MG TABLETS AS NEEDED
     Dates: start: 201704, end: 201706
  4. LEVOTHYROXINE. [Concomitant]
     Active Substance: LEVOTHYROXINE
     Indication: THYROID DISORDER
     Dosage: UNK, 0.05MG AND 0.75MG ONE EVERY OTHER DAY IN THE MORNING
  5. ATORVASTATIN CALCIUM. [Concomitant]
     Active Substance: ATORVASTATIN CALCIUM
     Indication: BLOOD CHOLESTEROL ABNORMAL
     Dosage: 20 MG, 1X/DAY (ONCE A NIGHT)
  6. LETROZOLE. [Concomitant]
     Active Substance: LETROZOLE
     Indication: BREAST CANCER
     Dosage: 2.5 MG, 1X/DAY
     Dates: start: 20170420, end: 201706
  7. ONDANSETRON [Concomitant]
     Active Substance: ONDANSETRON
     Indication: NAUSEA
     Dosage: 8 MG, AS NEEDED
     Dates: start: 201704, end: 201706
  8. OSTEO BI-FLEX /01431201/ [Concomitant]
     Indication: JOINT STIFFNESS
     Dosage: 2 DF, DAILY(2 CAPSULES TRIPLE STRENGTH DAILY)
  9. ZYRTEC /00884302/ [Concomitant]
     Indication: SINUS DISORDER
     Dosage: 10 MG, AS NEEDED
  10. CALTRATE WITH VITAMIN D [Concomitant]
     Active Substance: CALCIUM CARBONATE\CHOLECALCIFEROL
     Indication: BONE DISORDER
     Dosage: 2 DF, DAILY(TWO TABLETS A DAY)
  11. IBUPROFEN. [Concomitant]
     Active Substance: IBUPROFEN
     Indication: PAIN
     Dosage: 200 MG, AS NEEDED
  12. IBRANCE [Suspect]
     Active Substance: PALBOCICLIB
     Indication: BREAST CANCER
     Dosage: 125 MG, CYCLIC(125MG ONE TABLET A DAY 21 DAYS ON AND 7 DAYS OFF)
     Dates: start: 20170420, end: 201706
  13. ADVIL [Concomitant]
     Active Substance: IBUPROFEN
     Indication: PAIN
     Dosage: 200 MG, AS NEEDED
  14. NEXIUM [Concomitant]
     Active Substance: ESOMEPRAZOLE MAGNESIUM
     Indication: DYSPEPSIA
     Dosage: 40 MG, 1X/DAY (ONCE IN THE MORNING)
  15. ICAPS /07499601/ [Concomitant]
     Active Substance: MINERALS\VITAMINS
     Indication: EYE DEGENERATIVE DISORDER
     Dosage: 1 DF, DAILY

REACTIONS (3)
  - Pain [Recovering/Resolving]
  - Abdominal pain upper [Recovered/Resolved]
  - Neoplasm progression [Unknown]

NARRATIVE: CASE EVENT DATE: 201704
